FAERS Safety Report 11341590 (Version 1)
Quarter: 2015Q3

REPORT INFORMATION
  Report Type: Spontaneous
  Country: JP (occurrence: JP)
  Receive Date: 20150805
  Receipt Date: 20150805
  Transmission Date: 20151125
  Serious: Yes (Hospitalization)
  Sender: FDA-Public Use
  Company Number: JP-PFIZER INC-2015235500

PATIENT
  Age: 38 Year
  Sex: Female
  Weight: 53 kg

DRUGS (9)
  1. VALERIN /00228502/ [Concomitant]
     Active Substance: VALPROATE SODIUM
     Dosage: 200 MG, 3X/DAY
     Route: 048
  2. TAKEPRON [Concomitant]
     Active Substance: LANSOPRAZOLE
     Dosage: 15 MG, 1X/DAY
     Route: 048
  3. MYONAL /01071502/ [Concomitant]
     Dosage: 50 MG, 2X/DAY
     Route: 048
  4. MUCOSTA [Concomitant]
     Active Substance: REBAMIPIDE
     Dosage: 100 MG, 3X/DAY
     Route: 048
  5. TOKISHAKUYAKUSAN /08000701/ [Concomitant]
     Dosage: 5 G, 2X/DAY
     Route: 048
  6. HALCION [Suspect]
     Active Substance: TRIAZOLAM
     Dosage: 6.25 MG, SINGLE
     Route: 048
  7. PRIMPERAN [Concomitant]
     Active Substance: METOCLOPRAMIDE HYDROCHLORIDE
     Dosage: 1 DF, 2X/DAY
     Route: 048
  8. BENZALIN /00036201/ [Concomitant]
     Active Substance: NITRAZEPAM
     Dosage: 5 MG, 1X/DAY
     Route: 048
  9. BOFUTSUSHOSAN [Concomitant]
     Active Substance: HERBALS
     Dosage: 7.5 G, 2X/DAY
     Route: 048

REACTIONS (2)
  - Intentional overdose [Recovered/Resolved]
  - Suicide attempt [Recovered/Resolved]

NARRATIVE: CASE EVENT DATE: 20150713
